FAERS Safety Report 5752544-8 (Version None)
Quarter: 2008Q2

REPORT INFORMATION
  Report Type: 
  Country: None (occurrence: None)
  Receive Date: 20080529
  Receipt Date: 20080519
  Transmission Date: 20081010
  Serious: Yes (Hospitalization)
  Sender: FDA-Public Use
  Company Number: BR-ABBOTT-08P-020-0450776-00

PATIENT
  Sex: Male
  Weight: 67 kg

DRUGS (3)
  1. HUMIRA [Suspect]
     Indication: ANKYLOSING SPONDYLITIS
     Route: 058
     Dates: start: 20071115, end: 20080101
  2. SULFASALAZINE [Concomitant]
     Indication: ANKYLOSING SPONDYLITIS
  3. OMEPRAZOLE [Concomitant]
     Indication: PROPHYLAXIS AGAINST GASTROINTESTINAL ULCER

REACTIONS (5)
  - BONE NEOPLASM [None]
  - NODULE [None]
  - PAIN [None]
  - STRESS FRACTURE [None]
  - VERTEBRAL COLUMN MASS [None]
